FAERS Safety Report 20484091 (Version 1)
Quarter: 2022Q1

REPORT INFORMATION
  Report Type: Report from Study
  Country: US (occurrence: None)
  Receive Date: 20220217
  Receipt Date: 20220217
  Transmission Date: 20220423
  Serious: Yes (Hospitalization)
  Sender: FDA-Public Use
  Company Number: 2022A068198

PATIENT
  Sex: Male
  Weight: 63.5 kg

DRUGS (4)
  1. LYNPARZA [Suspect]
     Active Substance: OLAPARIB
     Indication: Prostate cancer
     Route: 048
     Dates: start: 20220125
  2. ELIQUIS [Concomitant]
     Active Substance: APIXABAN
  3. OXYCODONE HYDROCHLORIDE [Concomitant]
     Active Substance: OXYCODONE HYDROCHLORIDE
  4. DIHYDROCODEINE/PARACETAMOL/CAFFEINE [Concomitant]

REACTIONS (1)
  - Therapeutic product effect increased [Unknown]
